FAERS Safety Report 18799882 (Version 1)
Quarter: 2021Q1

REPORT INFORMATION
  Report Type: Spontaneous
  Country: CN (occurrence: CN)
  Receive Date: 20210128
  Receipt Date: 20210128
  Transmission Date: 20210419
  Serious: Yes (Hospitalization, Other)
  Sender: FDA-Public Use
  Company Number: CN-BAXTER-2021BAX001282

PATIENT
  Age: 87 Year
  Sex: Female
  Weight: 30 kg

DRUGS (1)
  1. 20% MANNITOL INJECTION [Suspect]
     Active Substance: MANNITOL
     Indication: REDUCTION OF INCREASED INTRACRANIAL PRESSURE
     Route: 041
     Dates: start: 20201226, end: 20201229

REACTIONS (6)
  - Cerebral haemorrhage [Unknown]
  - Atrial fibrillation [Unknown]
  - Hyponatraemia [Recovering/Resolving]
  - Blood creatinine increased [Recovering/Resolving]
  - Condition aggravated [Unknown]
  - Diastolic dysfunction [Unknown]

NARRATIVE: CASE EVENT DATE: 20201229
